FAERS Safety Report 9887884 (Version 7)
Quarter: 2014Q3

REPORT INFORMATION
  Report Type: Report from Study
  Country: DE (occurrence: DE)
  Receive Date: 20140211
  Receipt Date: 20140704
  Transmission Date: 20150326
  Serious: Yes (Life-Threatening, Hospitalization)
  Sender: FDA-Public Use
  Company Number: DE-ROCHE-1192045

PATIENT
  Age: 56 Year
  Sex: Female
  Weight: 92.5 kg

DRUGS (23)
  1. OBINUTUZUMAB [Suspect]
     Active Substance: OBINUTUZUMAB
     Indication: NON-HODGKIN^S LYMPHOMA UNSPECIFIED HISTOLOGY INDOLENT
     Dosage: DATE OF MOST RECENT DOSE (VOLUME : 250 ML AND DOSE CONENTRATION 4 MG/ML) PRIOR TO SAE ON 12/FEB/2013
     Route: 042
     Dates: start: 20130212
  2. PARACETAMOL [Concomitant]
     Active Substance: ACETAMINOPHEN
     Indication: PREMEDICATION
     Route: 065
     Dates: start: 20130212
  3. FENISTIL (GERMANY) [Concomitant]
     Indication: HERPES ZOSTER
     Route: 065
     Dates: start: 20130912, end: 20131018
  4. FOLSAN [Concomitant]
     Active Substance: FOLIC ACID
     Indication: PROPHYLAXIS
     Route: 065
     Dates: start: 20130208
  5. RED BLOOD CELL CONCENTRATE [Concomitant]
     Active Substance: HUMAN RED BLOOD CELL
     Indication: ANAEMIA
     Route: 065
     Dates: start: 20130213, end: 20130213
  6. TAVEGIL [Concomitant]
     Active Substance: CLEMASTINE FUMARATE
     Indication: HYPERSENSITIVITY
  7. SOLU-DECORTIN H [Concomitant]
     Indication: PREMEDICATION
     Route: 065
     Dates: start: 20130212
  8. SOLU-DECORTIN H [Concomitant]
     Indication: HYPERSENSITIVITY
  9. CLEXANE [Concomitant]
     Active Substance: ENOXAPARIN SODIUM
     Route: 065
     Dates: start: 20130215, end: 20130305
  10. POSIFORMIN [Concomitant]
     Indication: HORDEOLUM
     Route: 065
     Dates: start: 20130802, end: 20130810
  11. NEULASTA [Concomitant]
     Active Substance: PEGFILGRASTIM
     Indication: NEUTROPENIA
     Route: 065
     Dates: start: 20130614, end: 20130614
  12. CIPROBAY [Concomitant]
     Active Substance: CIPROFLOXACIN
     Indication: INFECTION
     Route: 065
     Dates: start: 20130212
  13. NOVALGIN [Concomitant]
     Active Substance: METAMIZOLE SODIUM
     Indication: CANCER PAIN
     Route: 065
     Dates: start: 20130208, end: 20130213
  14. BENDAMUSTINE [Suspect]
     Active Substance: BENDAMUSTINE
     Indication: NON-HODGKIN^S LYMPHOMA UNSPECIFIED HISTOLOGY INDOLENT
     Dosage: LAST DOSE PRIOR TO EVENT ON 12/FEB/2013 LAST DOSE TAKEN ND MG?LAST DOSE ON 10/JAN/2013 PRIOR TO EVEN
     Route: 042
     Dates: start: 20130212, end: 20130807
  15. DOLANTINE [Concomitant]
     Indication: HYPERSENSITIVITY
     Route: 065
     Dates: start: 20130212, end: 20130212
  16. OXYGEN. [Concomitant]
     Active Substance: OXYGEN
     Indication: DYSPNOEA
     Route: 065
     Dates: start: 20130215, end: 20130215
  17. TAVEGIL [Concomitant]
     Active Substance: CLEMASTINE FUMARATE
     Indication: PREMEDICATION
     Route: 065
     Dates: start: 20130212
  18. PARACETAMOL [Concomitant]
     Active Substance: ACETAMINOPHEN
     Indication: HYPERSENSITIVITY
  19. ACICLOVIR [Concomitant]
     Active Substance: ACYCLOVIR
     Indication: HERPES ZOSTER
     Route: 065
     Dates: start: 20130715, end: 20130817
  20. ALLOPURINOL. [Concomitant]
     Active Substance: ALLOPURINOL
     Indication: HYPERURICAEMIA
     Route: 065
     Dates: start: 20130214
  21. BIFITERAL [Concomitant]
     Active Substance: LACTULOSE
     Indication: CONSTIPATION
     Route: 065
     Dates: start: 20130213, end: 20130214
  22. LYRICA [Concomitant]
     Active Substance: PREGABALIN
     Indication: HERPES ZOSTER
     Route: 065
     Dates: start: 20130802, end: 20130911
  23. ESIDRIX [Concomitant]
     Active Substance: HYDROCHLOROTHIAZIDE
     Indication: OEDEMA PERIPHERAL
     Route: 065
     Dates: start: 20140625

REACTIONS (2)
  - Cytokine release syndrome [Recovered/Resolved]
  - Infusion related reaction [Recovered/Resolved]

NARRATIVE: CASE EVENT DATE: 20130212
